FAERS Safety Report 11533680 (Version 1)
Quarter: 2015Q3

REPORT INFORMATION
  Report Type: Spontaneous
  Country: US (occurrence: US)
  Receive Date: 20150921
  Receipt Date: 20150921
  Transmission Date: 20151125
  Serious: No
  Sender: FDA-Public Use
  Company Number: US-SIGMA-TAU US-2015STPI000379

PATIENT
  Age: 47 Year
  Sex: Female

DRUGS (1)
  1. MATULANE [Suspect]
     Active Substance: PROCARBAZINE HYDROCHLORIDE
     Indication: BRAIN NEOPLASM MALIGNANT
     Dosage: 3 CAPSULES DAILY ON DAYS 2 TO 15 CYCLE
     Route: 048
     Dates: start: 20150327

REACTIONS (1)
  - Dizziness [Not Recovered/Not Resolved]

NARRATIVE: CASE EVENT DATE: 20150521
